FAERS Safety Report 6800403-1 (Version None)
Quarter: 2010Q2

REPORT INFORMATION
  Report Type: 
  Country: None (occurrence: None)
  Receive Date: 20100629
  Receipt Date: 20090717
  Transmission Date: 20101027
  Serious: Yes (Hospitalization, Other)
  Sender: FDA-Public Use
  Company Number: US-ASTRAZENECA-2007UW05622

PATIENT
  Age: 12939 Day
  Sex: Male
  Weight: 108.9 kg

DRUGS (22)
  1. SEROQUEL [Suspect]
     Indication: DEPRESSION
     Dosage: 50 MG - 800 MG
     Route: 048
     Dates: start: 19991022
  2. SEROQUEL [Suspect]
     Indication: SCHIZOPHRENIA
     Dosage: 50 MG - 800 MG
     Route: 048
     Dates: start: 19991022
  3. SEROQUEL [Suspect]
     Dosage: 400 TO 600 MG
     Route: 048
     Dates: start: 20000105, end: 20050122
  4. SEROQUEL [Suspect]
     Dosage: 400 TO 600 MG
     Route: 048
     Dates: start: 20000105, end: 20050122
  5. SEROQUEL [Suspect]
     Route: 048
     Dates: start: 20000105
  6. SEROQUEL [Suspect]
     Route: 048
     Dates: start: 20000105
  7. ZYPREXA [Concomitant]
     Indication: DEPRESSION
     Route: 065
     Dates: start: 19980101
  8. ZYPREXA [Concomitant]
     Indication: SCHIZOPHRENIA
     Route: 065
     Dates: start: 19980101
  9. ZOLOFT [Concomitant]
     Dosage: 50-100 MG
     Route: 048
  10. VASOTEC [Concomitant]
     Dosage: 5 - 20 MG
     Route: 048
  11. GEODON [Concomitant]
     Dosage: 40 - 200 MG
     Route: 065
  12. BUPROPION HCL [Concomitant]
     Route: 048
  13. BENZTROPINE MESYLATE [Concomitant]
     Dosage: 0.25 - 1.0 MG
     Route: 048
  14. GLUCOPHAGE [Concomitant]
     Dosage: 500-1000 MG
     Route: 048
  15. FAMOTIDINE [Concomitant]
     Route: 048
  16. GLYBURIDE [Concomitant]
     Dosage: 5 - 10 MG
     Route: 048
  17. NORVASC [Concomitant]
     Route: 048
  18. ATIVAN [Concomitant]
     Dosage: 1-2 MG
     Route: 048
  19. UNIVASC [Concomitant]
     Route: 048
  20. LABETALOL HCL [Concomitant]
     Dosage: 5 - 50 MG
     Route: 042
  21. HALDOL [Concomitant]
     Dosage: 5 - 100 MG
     Route: 030
  22. WELLBUTRIN [Concomitant]
     Dates: start: 20000105

REACTIONS (16)
  - CONSTIPATION [None]
  - DIABETIC NEUROPATHY [None]
  - DIABETIC RETINOPATHY [None]
  - GASTROENTERITIS [None]
  - HYPERCHOLESTEROLAEMIA [None]
  - INSOMNIA [None]
  - MUSCLE STRAIN [None]
  - MUSCULOSKELETAL STIFFNESS [None]
  - NAUSEA [None]
  - RESTLESSNESS [None]
  - SCHIZOPHRENIA, PARANOID TYPE [None]
  - SKIN ULCER [None]
  - TRAUMATIC BRAIN INJURY [None]
  - TYPE 2 DIABETES MELLITUS [None]
  - VISION BLURRED [None]
  - VOMITING [None]
